FAERS Safety Report 9815462 (Version 9)
Quarter: 2015Q2

REPORT INFORMATION
  Report Type: Spontaneous
  Country: US (occurrence: US)
  Receive Date: 20140114
  Receipt Date: 20150617
  Transmission Date: 20150821
  Serious: No
  Sender: FDA-Public Use
  Company Number: US-PFIZER INC-2014004843

PATIENT
  Age: 73 Year
  Sex: Male
  Weight: 76 kg

DRUGS (5)
  1. SUTENT [Suspect]
     Active Substance: SUNITINIB MALATE
     Indication: RENAL CELL CARCINOMA
     Dosage: 50 MG, CYCLIC, (4 WEEKS ON/2 WEEKS OFF)
     Route: 048
     Dates: start: 20131217
  2. SUTENT [Suspect]
     Active Substance: SUNITINIB MALATE
     Dosage: 50 MG, 1X/DAY
     Dates: start: 201312
  3. SUTENT [Suspect]
     Active Substance: SUNITINIB MALATE
     Dosage: 50 MG, UNK
     Dates: start: 20140513
  4. TERAZOSIN [Concomitant]
     Active Substance: TERAZOSIN\TERAZOSIN HYDROCHLORIDE
     Dosage: UNK
     Dates: start: 2000
  5. FINASTERIDE. [Concomitant]
     Active Substance: FINASTERIDE
     Dosage: UNK
     Dates: start: 2000

REACTIONS (13)
  - Malaise [Recovering/Resolving]
  - Bone disorder [Recovered/Resolved]
  - Hyperhidrosis [Recovered/Resolved]
  - Diarrhoea [Unknown]
  - Chills [Recovered/Resolved]
  - Insomnia [Recovered/Resolved]
  - Headache [Recovering/Resolving]
  - Epistaxis [Recovered/Resolved]
  - Dysgeusia [Not Recovered/Not Resolved]
  - Ageusia [Unknown]
  - Abdominal distension [Unknown]
  - Palmar-plantar erythrodysaesthesia syndrome [Not Recovered/Not Resolved]
  - Bone pain [Not Recovered/Not Resolved]

NARRATIVE: CASE EVENT DATE: 201401
